FAERS Safety Report 5524337-8 (Version None)
Quarter: 2007Q4

REPORT INFORMATION
  Report Type: 
  Country: None (occurrence: None)
  Receive Date: 20071121
  Receipt Date: 20071112
  Transmission Date: 20080405
  Serious: Yes (Other)
  Sender: FDA-Public Use
  Company Number: FR-PFIZER INC-2007095783

PATIENT
  Age: 60 Year
  Sex: Female

DRUGS (1)
  1. TAHOR [Suspect]
     Indication: MYOCARDIAL INFARCTION

REACTIONS (3)
  - BONE FISSURE [None]
  - MYALGIA [None]
  - TENDON DISORDER [None]
